FAERS Safety Report 8037537-2 (Version None)
Quarter: 2012Q1

REPORT INFORMATION
  Report Type: 
  Country: None (occurrence: None)
  Receive Date: 20120106
  Receipt Date: 20111221
  Transmission Date: 20120608
  Serious: Yes (Other)
  Sender: FDA-Public Use
  Company Number: 1000026613

PATIENT
  Sex: Female

DRUGS (1)
  1. DINOPROSTONE (DINOPROSTONE) (10 MILLIGRAM, VAGINAL INSERT) [Suspect]
     Indication: LABOUR INDUCTION
     Dosage: (10 MG), VAGINAL INSERT
     Route: 067

REACTIONS (6)
  - PYREXIA [None]
  - DIARRHOEA [None]
  - CHILLS [None]
  - NAUSEA [None]
  - FOETAL EXPOSURE DURING PREGNANCY [None]
  - VOMITING [None]
